FAERS Safety Report 6578035-2 (Version None)
Quarter: 2010Q1

REPORT INFORMATION
  Report Type: 
  Country: None (occurrence: None)
  Receive Date: 20100211
  Receipt Date: 20100201
  Transmission Date: 20100710
  Serious: Yes (Other)
  Sender: FDA-Public Use
  Company Number: US-BAXTER-2010BH001356

PATIENT
  Age: 57 Year
  Sex: Female

DRUGS (10)
  1. GAMMAGARD LIQUID [Suspect]
     Indication: POLYMYALGIA RHEUMATICA
     Route: 042
     Dates: start: 20090706, end: 20090710
  2. GAMMAGARD LIQUID [Suspect]
     Indication: OFF LABEL USE
     Route: 042
     Dates: start: 20090706, end: 20090710
  3. DIPHENHYDRAMINE HYDROCHLORIDE [Concomitant]
     Indication: PREMEDICATION
     Route: 042
  4. SOLU-MEDROL [Concomitant]
     Indication: PREMEDICATION
     Route: 042
  5. CORTICOSTEROID NOS [Concomitant]
     Route: 048
  6. SINGULAIR [Concomitant]
  7. COZAAR [Concomitant]
  8. CARDIZEM [Concomitant]
  9. NEXIUM [Concomitant]
  10. KLONOPIN [Concomitant]

REACTIONS (10)
  - CHILLS [None]
  - ERYTHEMA [None]
  - FLUSHING [None]
  - HEADACHE [None]
  - MENINGITIS ASEPTIC [None]
  - NECK PAIN [None]
  - PYREXIA [None]
  - STATUS MIGRAINOSUS [None]
  - SUPRAVENTRICULAR EXTRASYSTOLES [None]
  - VISION BLURRED [None]
